FAERS Safety Report 9221785 (Version 1)
Quarter: 2013Q1

REPORT INFORMATION
  Report Type: Spontaneous
  Country: US (occurrence: None)
  Receive Date: 20120907
  Receipt Date: 20120907
  Transmission Date: 20140127
  Serious: No
  Sender: FDA-Public Use
  Company Number: TH-2012-00547

PATIENT
  Sex: Female

DRUGS (2)
  1. EGRIFTA [Suspect]
     Indication: LIPODYSTROPHY ACQUIRED
  2. MELOXICAM (MELOXICAM) [Concomitant]

REACTIONS (4)
  - Burning sensation [None]
  - Neuropathy peripheral [None]
  - Carpal tunnel syndrome [None]
  - Hypoaesthesia [None]
